FAERS Safety Report 4594929-1 (Version None)
Quarter: 2005Q1

REPORT INFORMATION
  Report Type: 
  Country: None (occurrence: None)
  Receive Date: 20050223
  Receipt Date: 20050208
  Transmission Date: 20050727
  Serious: Yes (Life-Threatening, Hospitalization, Other)
  Sender: FDA-Public Use
  Company Number: 2005026699

PATIENT
  Age: 62 Year
  Sex: Male
  Weight: 94 kg

DRUGS (8)
  1. BEXTRA [Suspect]
     Indication: OSTEOARTHRITIS
     Dosage: (40 MG AS NEEDED), ORAL
     Route: 048
     Dates: start: 20040901, end: 20050201
  2. TELMISARTAN [Concomitant]
  3. ESOMEPRAZOLE [Concomitant]
  4. HYDROCHLOROTHIAZIDE [Concomitant]
  5. AMLODIPINE BESYLATE [Concomitant]
  6. ACETYLSALICYLIC ACID [Concomitant]
  7. ATORVASTATIN [Concomitant]
  8. LEVOTHYROXINE SODIUM [Concomitant]

REACTIONS (9)
  - ACUTE CORONARY SYNDROME [None]
  - ANGINA UNSTABLE [None]
  - AORTIC VALVE DISEASE [None]
  - BLOOD HOMOCYSTEINE INCREASED [None]
  - BLOOD THYROID STIMULATING HORMONE INCREASED [None]
  - DYSPEPSIA [None]
  - HYPOTHYROIDISM [None]
  - MYOCARDIAL ISCHAEMIA [None]
  - VASCULAR GRAFT OCCLUSION [None]
